FAERS Safety Report 11183806 (Version 1)
Quarter: 2015Q2

REPORT INFORMATION
  Report Type: Spontaneous
  Country: US (occurrence: None)
  Receive Date: 20150611
  Receipt Date: 20150611
  Transmission Date: 20150821
  Serious: Yes (Other)
  Sender: FDA-Public Use
  Company Number: None

PATIENT
  Age: 55 Year
  Sex: Female

DRUGS (2)
  1. AMPYRA [Suspect]
     Active Substance: DALFAMPRIDINE
     Indication: MULTIPLE SCLEROSIS
     Route: 048
     Dates: start: 201006, end: 201008
  2. DALFAMPRIDINE (AMPYRA) SR [Concomitant]

REACTIONS (2)
  - Therapy cessation [None]
  - Adverse reaction [None]

NARRATIVE: CASE EVENT DATE: 20150603
